FAERS Safety Report 6746991-5 (Version None)
Quarter: 2010Q2

REPORT INFORMATION
  Report Type: 
  Country: None (occurrence: None)
  Receive Date: 20100528
  Receipt Date: 20100519
  Transmission Date: 20101027
  Serious: Yes (Other)
  Sender: FDA-Public Use
  Company Number: FI-JNJFOC-20100505289

PATIENT
  Age: 46 Year
  Sex: Female

DRUGS (10)
  1. REMICADE [Suspect]
     Indication: COLITIS ULCERATIVE
     Dosage: TOTAL OF 5 INFUSIONS
     Route: 042
  2. REMICADE [Suspect]
     Route: 042
  3. 5-ASA [Concomitant]
  4. PENTASA [Concomitant]
  5. PARACETAMOL [Concomitant]
     Dosage: 5 GRAMS IN TOTAL
  6. SALAZOPYRIN [Concomitant]
     Route: 065
  7. DIPENTUM [Concomitant]
     Route: 065
  8. VITAMIN B+C [Concomitant]
  9. RENNIE [Concomitant]
     Route: 065
  10. NAPROSYN [Concomitant]
     Dosage: 5 TO 10 TABLETS
     Route: 065

REACTIONS (3)
  - ENCEPHALOPATHY [None]
  - HEPATIC ENZYME INCREASED [None]
  - HEPATIC NECROSIS [None]
